FAERS Safety Report 22192940 (Version 1)
Quarter: 2023Q2

REPORT INFORMATION
  Report Type: Report from Study
  Country: IN (occurrence: None)
  Receive Date: 20230410
  Receipt Date: 20230410
  Transmission Date: 20230721
  Serious: Yes (Hospitalization)
  Sender: FDA-Public Use
  Company Number: 2023A081530

PATIENT
  Age: 20879 Day
  Sex: Female

DRUGS (1)
  1. TAGRISSO [Suspect]
     Active Substance: OSIMERTINIB
     Indication: Metastasis
     Route: 048

REACTIONS (2)
  - Somnolence [Recovered/Resolved]
  - Blood electrolytes decreased [Recovered/Resolved]

NARRATIVE: CASE EVENT DATE: 20230302
